FAERS Safety Report 7848600 (Version 4)
Quarter: 2014Q2

REPORT INFORMATION
  Report Type: Report from Study
  Country: GB (occurrence: GB)
  Receive Date: 20110309
  Receipt Date: 20140610
  Transmission Date: 20141212
  Serious: Yes (Other)
  Sender: FDA-Public Use
  Company Number: GB-B.I. PHARMACEUTICALS,INC./RIDGEFIELD-2011-BP-05340BP

PATIENT
  Age: 0 Day
  Sex: Female
  Weight: .92 kg

DRUGS (5)
  1. VIRAMUNE [Suspect]
     Indication: EXPOSURE DURING PREGNANCY
     Route: 064
     Dates: start: 20110218, end: 20110219
  2. REYATAZ [Concomitant]
     Indication: EXPOSURE DURING PREGNANCY
     Route: 064
     Dates: start: 20101207
  3. NORVIR [Concomitant]
     Indication: EXPOSURE DURING PREGNANCY
     Route: 064
     Dates: start: 20101207
  4. TRUVADA [Concomitant]
     Indication: EXPOSURE DURING PREGNANCY
     Dosage: FORMULATION: TAB/CAPS
     Route: 064
     Dates: start: 20101207
  5. ISENTRESS [Concomitant]
     Indication: EXPOSURE DURING PREGNANCY
     Route: 064
     Dates: start: 20110218, end: 20110219

REACTIONS (2)
  - Low birth weight baby [Unknown]
  - Premature baby [Unknown]
